FAERS Safety Report 8058544-X (Version None)
Quarter: 2012Q1

REPORT INFORMATION
  Report Type: 
  Country: None (occurrence: None)
  Receive Date: 20120119
  Receipt Date: 20120119
  Transmission Date: 20120608
  Serious: Yes (Death, Life-Threatening, Hospitalization, Other)
  Sender: FDA-Public Use
  Company Number: None

PATIENT
  Age: 88 Year
  Sex: Female
  Weight: 23.1334 kg

DRUGS (1)
  1. PRADAXA [Suspect]
     Indication: ATRIAL FIBRILLATION
     Dosage: 75MG 2X A DAY
     Dates: start: 20110530, end: 20110704

REACTIONS (6)
  - RASH [None]
  - SWELLING [None]
  - HYPERSENSITIVITY [None]
  - RENAL DISORDER [None]
  - GASTROINTESTINAL DISORDER [None]
  - DYSPNOEA [None]
